FAERS Safety Report 13287623 (Version 1)
Quarter: 2017Q1

REPORT INFORMATION
  Report Type: Spontaneous
  Country: US (occurrence: US)
  Receive Date: 20170302
  Receipt Date: 20170302
  Transmission Date: 20170428
  Serious: No
  Sender: FDA-Public Use
  Company Number: US-009507513-1702USA011321

PATIENT
  Sex: Female

DRUGS (1)
  1. PROVENTIL [Suspect]
     Active Substance: ALBUTEROL
     Indication: CHRONIC OBSTRUCTIVE PULMONARY DISEASE
     Dosage: 90 MICROGRAM, 2 PUFFS DAILY
     Route: 045

REACTIONS (7)
  - Respiratory tract congestion [Unknown]
  - Asthma [Unknown]
  - Headache [Unknown]
  - Fatigue [Unknown]
  - Drug dose omission [Unknown]
  - Dyspnoea [Unknown]
  - Thyroid disorder [Unknown]

NARRATIVE: CASE EVENT DATE: 20170223
